FAERS Safety Report 25737649 (Version 2)
Quarter: 2025Q4

REPORT INFORMATION
  Report Type: Report from Study
  Country: US (occurrence: US)
  Receive Date: 20250828
  Receipt Date: 20251210
  Transmission Date: 20260117
  Serious: Yes (Other)
  Sender: BIOGEN
  Company Number: US-BIOGEN-2025BI01321935

PATIENT
  Age: 36 Year
  Sex: Female

DRUGS (2)
  1. SKYCLARYS [Suspect]
     Active Substance: OMAVELOXOLONE
     Indication: Friedreich^s ataxia
  2. SKYCLARYS [Suspect]
     Active Substance: OMAVELOXOLONE

REACTIONS (7)
  - Hip fracture [Unknown]
  - Osteoporosis [Unknown]
  - Fall [Recovered/Resolved]
  - Dysphagia [Unknown]
  - Face injury [Unknown]
  - Menopausal symptoms [Unknown]
  - Device dislocation [Unknown]

NARRATIVE: CASE EVENT DATE: 20250301
